FAERS Safety Report 6645062-6 (Version None)
Quarter: 2010Q1

REPORT INFORMATION
  Report Type: 
  Country: None (occurrence: None)
  Receive Date: 20100319
  Receipt Date: 20100319
  Transmission Date: 20100710
  Serious: Yes (Other)
  Sender: FDA-Public Use
  Company Number: None

PATIENT
  Age: 28 Month
  Sex: Male
  Weight: 14.0615 kg

DRUGS (1)
  1. SULFAMETHOXAZOLE AND TRIMETHOPRIM [Suspect]
     Indication: EAR INFECTION
     Dosage: 1 1/2 TEASPOON TWICE DAILY PO
     Route: 048
     Dates: start: 20100305, end: 20100315

REACTIONS (2)
  - INSOMNIA [None]
  - SLEEP PHASE RHYTHM DISTURBANCE [None]
